FAERS Safety Report 6850108-6 (Version None)
Quarter: 2010Q3

REPORT INFORMATION
  Report Type: 
  Country: None (occurrence: None)
  Receive Date: 20100716
  Receipt Date: 20100706
  Transmission Date: 20110219
  Serious: Yes (Hospitalization, Other)
  Sender: FDA-Public Use
  Company Number: US-ELI_LILLY_AND_COMPANY-US201007002268

PATIENT
  Age: 58 Year
  Sex: Male
  Weight: 50 kg

DRUGS (1)
  1. EFFIENT [Suspect]
     Indication: STENT PLACEMENT
     Dosage: 10 MG, DAILY (1/D)

REACTIONS (2)
  - RENAL FAILURE ACUTE [None]
  - RHABDOMYOLYSIS [None]
